FAERS Safety Report 21384735 (Version 1)
Quarter: 2022Q3

REPORT INFORMATION
  Report Type: Spontaneous
  Country: CH (occurrence: CH)
  Receive Date: 20220928
  Receipt Date: 20220928
  Transmission Date: 20221027
  Serious: Yes (Hospitalization)
  Sender: FDA-Public Use
  Company Number: CH-AMGEN-CHESP2022162606

PATIENT
  Age: 42 Year
  Sex: Male

DRUGS (6)
  1. ROMIPLOSTIM [Suspect]
     Active Substance: ROMIPLOSTIM
     Indication: Immune thrombocytopenia
     Dosage: 7 MICROGRAM/KG/WEEK (= 500 UG/WEEK)
     Route: 065
  2. ROMIPLOSTIM [Suspect]
     Active Substance: ROMIPLOSTIM
     Dosage: 10 MICROGRAM/KG/WEEK (=700 UG/WEEK)
     Route: 065
  3. ELASOMERAN [Suspect]
     Active Substance: ELASOMERAN
     Indication: COVID-19 immunisation
     Route: 065
  4. PREDNISONE [Concomitant]
     Active Substance: PREDNISONE
     Indication: Immune thrombocytopenia
     Dosage: 1 MILLIGRAM/KG/DAY FOR 3 WEEKS
  5. IMMUNE GLOBULIN NOS [Concomitant]
     Active Substance: IMMUNE GLOBULIN NOS
     Indication: Immune thrombocytopenia
     Dosage: 1 GRAM/KG
     Route: 040
  6. RITUXIMAB [Concomitant]
     Active Substance: RITUXIMAB
     Indication: Immune thrombocytopenia
     Dosage: 375 MILLIGRAM/M2 (700 MG/WEEK) FOR 4 WEEKS

REACTIONS (6)
  - Immune thrombocytopenia [Recovered/Resolved]
  - Helicobacter test positive [Recovered/Resolved]
  - Anti-platelet antibody [Unknown]
  - Immunosuppression [Unknown]
  - Antinuclear antibody increased [Unknown]
  - Drug ineffective [Unknown]
